FAERS Safety Report 21955154 (Version 1)
Quarter: 2023Q1

REPORT INFORMATION
  Report Type: Spontaneous
  Country: US (occurrence: US)
  Receive Date: 20230206
  Receipt Date: 20230206
  Transmission Date: 20230417
  Serious: No
  Sender: FDA-Public Use
  Company Number: US-AUROBINDO-AUR-APL-2022-017523

PATIENT
  Age: 1 Year
  Sex: Male
  Weight: 11 kg

DRUGS (1)
  1. CEFDINIR [Suspect]
     Active Substance: CEFDINIR
     Indication: Otitis media
     Dosage: 1.6 MILLILITER, TWO TIMES A DAY
     Route: 048
     Dates: start: 20220506, end: 20220508

REACTIONS (2)
  - Drug ineffective [Unknown]
  - Product storage error [Unknown]
